FAERS Safety Report 9242246 (Version 2)
Quarter: 2013Q3

REPORT INFORMATION
  Report Type: Report from Study
  Country: DE (occurrence: DE)
  Receive Date: 20130419
  Receipt Date: 20130708
  Transmission Date: 20140515
  Serious: Yes (Hospitalization)
  Sender: FDA-Public Use
  Company Number: DE-ABBOTT-13P-062-1077341-00

PATIENT
  Sex: Male

DRUGS (2)
  1. HUMIRA [Suspect]
     Indication: CROHN^S DISEASE
     Route: 050
     Dates: start: 20120112, end: 20130401
  2. HUMIRA [Suspect]
     Dates: start: 20130418

REACTIONS (2)
  - Intestinal stenosis [Recovering/Resolving]
  - Abdominal wound dehiscence [Recovering/Resolving]
